FAERS Safety Report 20738188 (Version 10)
Quarter: 2022Q3

REPORT INFORMATION
  Report Type: Report from Study
  Country: US (occurrence: US)
  Receive Date: 20220422
  Receipt Date: 20220809
  Transmission Date: 20221027
  Serious: Yes (Hospitalization)
  Sender: FDA-Public Use
  Company Number: US-JNJFOC-20220436410

PATIENT
  Age: 19 Year
  Sex: Male
  Weight: 77.452 kg

DRUGS (4)
  1. INFLIXIMAB [Suspect]
     Active Substance: INFLIXIMAB
     Indication: Crohn^s disease
     Dosage: DISCONTINUED ON AN UNSPECIFIED DATE (LAST DATE ADMINISTRATION 14-APR-2022)
     Route: 041
     Dates: start: 20121210
  2. INFLIXIMAB [Suspect]
     Active Substance: INFLIXIMAB
     Route: 042
  3. STELARA [Concomitant]
     Active Substance: USTEKINUMAB
  4. METHOTREXATE [Concomitant]
     Active Substance: METHOTREXATE

REACTIONS (4)
  - Vasculitis [Recovered/Resolved]
  - Vasculitis [Recovered/Resolved]
  - Crohn^s disease [Recovered/Resolved]
  - Crohn^s disease [Recovered/Resolved]

NARRATIVE: CASE EVENT DATE: 20220411
